FAERS Safety Report 25259959 (Version 1)
Quarter: 2025Q2

REPORT INFORMATION
  Report Type: Report from Study
  Country: CA (occurrence: CA)
  Receive Date: 20250501
  Receipt Date: 20250501
  Transmission Date: 20250717
  Serious: Yes (Other)
  Sender: TAKEDA
  Company Number: CA-TAKEDA-2025TUS030970

PATIENT
  Age: 83 Year
  Sex: Female

DRUGS (16)
  1. VEDOLIZUMAB [Suspect]
     Active Substance: VEDOLIZUMAB
     Indication: Crohn^s disease
  2. VEDOLIZUMAB [Suspect]
     Active Substance: VEDOLIZUMAB
  3. METFORMIN [Concomitant]
     Active Substance: METFORMIN HYDROCHLORIDE
  4. AMLODIPINE [Concomitant]
     Active Substance: AMLODIPINE BESYLATE
  5. ENALAPRIL [Concomitant]
     Active Substance: ENALAPRIL
  6. ATENOLOL [Concomitant]
     Active Substance: ATENOLOL
  7. ASPIRIN [Concomitant]
     Active Substance: ASPIRIN
  8. EZETIMIBE [Concomitant]
     Active Substance: EZETIMIBE
  9. CALCIUM [Concomitant]
     Active Substance: CALCIUM
  10. VITAMIN D [Concomitant]
     Active Substance: VITAMIN D NOS
  11. NAPROXEN [Concomitant]
     Active Substance: NAPROXEN
  12. FLUTICASONE [Concomitant]
     Active Substance: FLUTICASONE
  13. ALBUTEROL [Concomitant]
     Active Substance: ALBUTEROL
  14. TUSSIONEX PENNKINETIC [Concomitant]
     Active Substance: CHLORPHENIRAMINE\HYDROCODONE
  15. RANITIDINE [Concomitant]
     Active Substance: RANITIDINE
  16. OLOPATADINE [Concomitant]
     Active Substance: OLOPATADINE

REACTIONS (1)
  - Crohn^s disease [Unknown]

NARRATIVE: CASE EVENT DATE: 20250301
